FAERS Safety Report 4309437-2 (Version None)
Quarter: 2004Q1

REPORT INFORMATION
  Report Type: 
  Country: None (occurrence: None)
  Receive Date: 20040301
  Receipt Date: 20040217
  Transmission Date: 20041129
  Serious: Yes (Other)
  Sender: FDA-Public Use
  Company Number: 2004011127

PATIENT
  Age: 32 Year
  Sex: Female

DRUGS (3)
  1. ZYRTEC [Suspect]
     Indication: RHINITIS ALLERGIC
     Dosage: ORAL
     Route: 048
  2. SERETIDE ^ALLEN + HANBURYS LTD^ (FLUTICASONE PROPIONATE, SALMETEROL) [Concomitant]
  3. ORAL CONTRACEPTIVE NOS (ORAL CONTRACEPTIVE NOS) [Concomitant]

REACTIONS (7)
  - DISEASE RECURRENCE [None]
  - DIZZINESS [None]
  - DRUG DEPENDENCE [None]
  - DYSPNOEA [None]
  - HEADACHE [None]
  - HYPERSENSITIVITY [None]
  - NAUSEA [None]
